FAERS Safety Report 24412640 (Version 1)
Quarter: 2024Q4

REPORT INFORMATION
  Report Type: Spontaneous
  Country: US (occurrence: None)
  Receive Date: 20241007
  Receipt Date: 20241007
  Transmission Date: 20250115
  Serious: Yes (Hospitalization, Disabling, Other)
  Sender: Public
  Company Number: None

PATIENT
  Age: 37 Year
  Sex: Female
  Weight: 56.25 kg

DRUGS (6)
  1. BOTOX COSMETIC [Suspect]
     Active Substance: ONABOTULINUMTOXINA
     Indication: Skin wrinkling
     Dosage: OTHER STRENGTH : UNITS;?
  2. JUVEDERM [Suspect]
  3. PROZAC [Concomitant]
     Active Substance: FLUOXETINE HYDROCHLORIDE
  4. FISH OIL [Concomitant]
     Active Substance: FISH OIL
  5. VITAMIN B [Concomitant]
     Active Substance: VITAMIN B
  6. PROBIOTICS NOS [Concomitant]
     Active Substance: PROBIOTICS NOS

REACTIONS (7)
  - Heart rate increased [None]
  - Palpitations [None]
  - Blood pressure decreased [None]
  - Swollen tongue [None]
  - Throat tightness [None]
  - Weight decreased [None]
  - Adverse drug reaction [None]

NARRATIVE: CASE EVENT DATE: 20240619
